FAERS Safety Report 6388958-5 (Version None)
Quarter: 2009Q4

REPORT INFORMATION
  Report Type: 
  Country: None (occurrence: None)
  Receive Date: 20091001
  Receipt Date: 20090922
  Transmission Date: 20100525
  Serious: Yes (Other)
  Sender: FDA-Public Use
  Company Number: ADR28882009

PATIENT
  Age: 72 Year
  Sex: Male

DRUGS (10)
  1. RAMIPRIL [Suspect]
     Indication: HYPERTENSION
     Dosage: 2.5 MG , ORAL; 5 MG, ORAL
     Route: 048
     Dates: start: 20080304, end: 20081001
  2. ACICLOVIR (200 MG) [Concomitant]
  3. ASPIRIN [Concomitant]
  4. ATENOLOL [Concomitant]
  5. ATORVASTATIN CALCIUM [Concomitant]
  6. CLOPIDOGREL [Concomitant]
  7. GLYCERYL TRINITRATE (400 MCG) [Concomitant]
  8. OMACOR (1000 MG) [Concomitant]
  9. OMEPRAZOLE [Concomitant]
  10. ACETAMINOPHEN [Concomitant]

REACTIONS (4)
  - AGITATION [None]
  - DROOLING [None]
  - DYSARTHRIA [None]
  - PARKINSONISM [None]
